FAERS Safety Report 24659359 (Version 1)
Quarter: 2024Q4

REPORT INFORMATION
  Report Type: Spontaneous
  Country: US (occurrence: None)
  Receive Date: 20241123
  Receipt Date: 20241123
  Transmission Date: 20250114
  Serious: Yes (Other)
  Sender: Public
  Company Number: None

PATIENT
  Age: 45 Year
  Sex: Female
  Weight: 69.3 kg

DRUGS (1)
  1. WEGOVY [Suspect]
     Active Substance: SEMAGLUTIDE

REACTIONS (9)
  - Panic attack [None]
  - Anxiety [None]
  - Constipation [None]
  - Vision blurred [None]
  - Headache [None]
  - Dry mouth [None]
  - Disturbance in attention [None]
  - Gastrointestinal disorder [None]
  - Nausea [None]

NARRATIVE: CASE EVENT DATE: 20241114
